FAERS Safety Report 10232912 (Version 2)
Quarter: 2014Q3

REPORT INFORMATION
  Report Type: Spontaneous
  Country: US (occurrence: None)
  Receive Date: 20140610
  Receipt Date: 20140701
  Transmission Date: 20150326
  Serious: Yes (Other)
  Sender: FDA-Public Use
  Company Number: 20140305

PATIENT
  Age: 64 Year
  Sex: Female

DRUGS (4)
  1. HYDRALAZINE HCL INJECTION, USP (0911-25) 20 MG/ML [Suspect]
     Active Substance: HYDRALAZINE HYDROCHLORIDE
     Indication: HYPERTENSION
     Dosage: 100 MG 3 X PER DAY (14 MONTHS) UNKNOWN
  2. CLONIDINE. [Concomitant]
     Active Substance: CLONIDINE
  3. HYDROCHLOROTHIAZIDE. [Concomitant]
     Active Substance: HYDROCHLOROTHIAZIDE
  4. VERAPAMIL [Concomitant]
     Active Substance: VERAPAMIL HYDROCHLORIDE

REACTIONS (6)
  - Glomerulonephritis [None]
  - Lung infiltration [None]
  - Lupus-like syndrome [None]
  - Vasculitis [None]
  - Normochromic normocytic anaemia [None]
  - Contusion [None]
